FAERS Safety Report 4616195-0 (Version None)
Quarter: 2005Q1

REPORT INFORMATION
  Report Type: 
  Country: None (occurrence: None)
  Receive Date: 20050321
  Receipt Date: 20050310
  Transmission Date: 20050727
  Serious: Yes (Hospitalization)
  Sender: FDA-Public Use
  Company Number: GXKR2005NL00737

PATIENT
  Age: 66 Year
  Sex: Female

DRUGS (2)
  1. METFORMIN (NGX)(METFORMIN) [Suspect]
     Indication: DIABETES MELLITUS NON-INSULIN-DEPENDENT
     Dosage: 850 MG, TID
     Dates: start: 20000201, end: 20000901
  2. ACE INHIBITOR NOS (NO INGREDIENTS/SUBSTANCES) [Suspect]
     Indication: HYPERTENSION

REACTIONS (11)
  - ABDOMINAL PAIN [None]
  - ANURIA [None]
  - APHAGIA [None]
  - DIALYSIS DISEQUILIBRIUM SYNDROME [None]
  - HAEMODIALYSIS [None]
  - HYPERKALAEMIA [None]
  - LACTIC ACIDOSIS [None]
  - MEDICATION ERROR [None]
  - RENAL FAILURE [None]
  - TACHYPNOEA [None]
  - VOMITING [None]
